FAERS Safety Report 9234829 (Version 1)
Quarter: 2013Q2

REPORT INFORMATION
  Report Type: Spontaneous
  Country: BE (occurrence: BE)
  Receive Date: 20130416
  Receipt Date: 20130416
  Transmission Date: 20140414
  Serious: Yes (Hospitalization, Other)
  Sender: FDA-Public Use
  Company Number: BE-BRISTOL-MYERS SQUIBB COMPANY-17396359

PATIENT
  Age: 68 Year
  Sex: Male

DRUGS (5)
  1. YERVOY [Suspect]
     Indication: METASTATIC MALIGNANT MELANOMA
     Dosage: 1 DF: 2 INF
     Route: 042
     Dates: start: 20121221, end: 20130110
  2. CIFLOXACINE [Concomitant]
     Dosage: 500MG*2
     Dates: start: 20120208
  3. GLUCOPHAGE [Concomitant]
  4. ATACAND [Concomitant]
  5. ALPRAZOLAM [Concomitant]

REACTIONS (5)
  - Large intestine perforation [Unknown]
  - Hypophysitis [Recovering/Resolving]
  - Colitis [Unknown]
  - Malignant neoplasm progression [Unknown]
  - Pneumonia [Unknown]
